FAERS Safety Report 9700868 (Version 2)
Quarter: 2013Q4

REPORT INFORMATION
  Report Type: Spontaneous
  Country: US (occurrence: US)
  Receive Date: 20131121
  Receipt Date: 20131121
  Transmission Date: 20140711
  Serious: Yes (Other)
  Sender: FDA-Public Use
  Company Number: US-ROCHE-1292861

PATIENT
  Sex: Female

DRUGS (5)
  1. PEGASYS [Suspect]
     Indication: CHRONIC HEPATITIS C
     Route: 058
     Dates: start: 20131021, end: 20131107
  2. RIBASPHERE [Suspect]
     Indication: CHRONIC HEPATITIS C
     Route: 048
     Dates: start: 20131021, end: 20131107
  3. INCIVEK [Suspect]
     Indication: CHRONIC HEPATITIS C
     Route: 065
     Dates: start: 20131021
  4. CELEXA (UNITED STATES) [Concomitant]
     Route: 065
  5. PROTONIX (UNITED STATES) [Concomitant]
     Indication: ABDOMINAL DISCOMFORT
     Route: 065

REACTIONS (19)
  - Renal failure [Unknown]
  - Insomnia [Unknown]
  - Diarrhoea [Unknown]
  - Nausea [Unknown]
  - Headache [Unknown]
  - Chills [Recovered/Resolved]
  - Myalgia [Recovered/Resolved]
  - Palpitations [Unknown]
  - Decreased appetite [Unknown]
  - Retching [Unknown]
  - Anorectal discomfort [Unknown]
  - Vomiting [Unknown]
  - Rash pruritic [Unknown]
  - Pruritus [Unknown]
  - Fatigue [Unknown]
  - Red blood cell count decreased [Unknown]
  - Haemoglobin decreased [Unknown]
  - Haematocrit decreased [Unknown]
  - Anaemia [Unknown]
